FAERS Safety Report 5332261-9 (Version None)
Quarter: 2007Q2

REPORT INFORMATION
  Report Type: 
  Country: None (occurrence: None)
  Receive Date: 20070306
  Receipt Date: 20060524
  Transmission Date: 20071010
  Serious: Yes (Hospitalization)
  Sender: FDA-Public Use
  Company Number: A03200603313

PATIENT
  Age: 92 Year
  Sex: Female

DRUGS (2)
  1. PLAVIX [Suspect]
     Dosage: ORAL
     Route: 048
     Dates: end: 20060401
  2. KETOCONAZOLE [Suspect]
     Indication: FUNGAL INFECTION
     Dosage: ORAL
     Route: 048
     Dates: start: 20060401

REACTIONS (2)
  - DRUG INTERACTION [None]
  - EPISTAXIS [None]
